FAERS Safety Report 22261102 (Version 2)
Quarter: 2023Q2

REPORT INFORMATION
  Report Type: Spontaneous
  Country: NZ (occurrence: None)
  Receive Date: 20230427
  Receipt Date: 20230430
  Transmission Date: 20230721
  Serious: Yes (Death)
  Sender: FDA-Public Use
  Company Number: NZ-ROCHE-3338069

PATIENT
  Sex: Female

DRUGS (1)
  1. HERCEPTIN [Suspect]
     Active Substance: TRASTUZUMAB
     Indication: Product used for unknown indication
     Dosage: 5ML,1
     Route: 058

REACTIONS (1)
  - Death [Fatal]
